FAERS Safety Report 4438780-1 (Version None)
Quarter: 2004Q3

REPORT INFORMATION
  Report Type: 
  Country: None (occurrence: None)
  Receive Date: 20040901
  Receipt Date: 20040820
  Transmission Date: 20050211
  Serious: Yes (Other)
  Sender: FDA-Public Use
  Company Number: US-JNJFOC-20040808095

PATIENT
  Sex: Female
  Weight: 68.04 kg

DRUGS (4)
  1. REMICADE [Suspect]
     Dosage: ^50^
     Route: 042
  2. REMICADE [Suspect]
     Indication: RHEUMATOID ARTHRITIS
     Dosage: ^5^
     Route: 042
  3. VIOXX [Concomitant]
     Indication: RHEUMATOID ARTHRITIS
  4. ULTRAM [Concomitant]
     Indication: PAIN

REACTIONS (9)
  - BALANCE DISORDER [None]
  - COUGH [None]
  - FALL [None]
  - HEADACHE [None]
  - IMPATIENCE [None]
  - OVERDOSE [None]
  - PRODUCTIVE COUGH [None]
  - RIB FRACTURE [None]
  - VOMITING [None]
